FAERS Safety Report 12969205 (Version 2)
Quarter: 2016Q4

REPORT INFORMATION
  Report Type: Other
  Country: US (occurrence: US)
  Receive Date: 20161123
  Receipt Date: 20161212
  Transmission Date: 20170207
  Serious: Yes (Hospitalization)
  Sender: FDA-Public Use
  Company Number: US-ACORDA-ACO_127026_2016

PATIENT
  Age: 57 Year
  Sex: Male

DRUGS (1)
  1. AMPYRA [Suspect]
     Active Substance: DALFAMPRIDINE
     Indication: MULTIPLE SCLEROSIS
     Dosage: 10 MG, Q 12 HRS
     Route: 048
     Dates: start: 20160212, end: 20160825

REACTIONS (13)
  - Pain in extremity [Not Recovered/Not Resolved]
  - Skin disorder [Unknown]
  - Drug ineffective [Unknown]
  - Asthenia [Unknown]
  - Condition aggravated [Unknown]
  - Rash [Unknown]
  - Pruritus generalised [Unknown]
  - Rhinorrhoea [Unknown]
  - Balance disorder [Not Recovered/Not Resolved]
  - Burning sensation [Not Recovered/Not Resolved]
  - Fatigue [Not Recovered/Not Resolved]
  - Skin discolouration [Not Recovered/Not Resolved]
  - Anal incontinence [Not Recovered/Not Resolved]

NARRATIVE: CASE EVENT DATE: 20160315
